FAERS Safety Report 22181965 (Version 1)
Quarter: 2023Q2

REPORT INFORMATION
  Report Type: Spontaneous
  Country: CO (occurrence: CO)
  Receive Date: 20230406
  Receipt Date: 20230406
  Transmission Date: 20230722
  Serious: Yes (Death)
  Sender: FDA-Public Use
  Company Number: CO-DAIICHI SANKYO EUROPE GMBH-DSE-2023-113291

PATIENT
  Age: 59 Year
  Sex: Male
  Weight: 84 kg

DRUGS (2)
  1. EFFIENT [Suspect]
     Active Substance: PRASUGREL HYDROCHLORIDE
     Indication: Acute myocardial infarction
     Dosage: 10 MG, QD
     Route: 048
     Dates: start: 20230218, end: 20230223
  2. ASPIRIN [Concomitant]
     Active Substance: ASPIRIN
     Indication: Acute myocardial infarction
     Dosage: 100 MG, QD
     Route: 048
     Dates: end: 20230223

REACTIONS (1)
  - Death [Fatal]

NARRATIVE: CASE EVENT DATE: 20230223
